FAERS Safety Report 8786884 (Version 2)
Quarter: 2013Q4

REPORT INFORMATION
  Report Type: Spontaneous
  Country: US (occurrence: US)
  Receive Date: 20120914
  Receipt Date: 20131106
  Transmission Date: 20140711
  Serious: Yes (Death)
  Sender: FDA-Public Use
  Company Number: US-009507513-1209USA003729

PATIENT
  Sex: 0

DRUGS (1)
  1. MEVACOR TABLET [Suspect]
     Route: 048

REACTIONS (1)
  - Myalgia [Fatal]
